FAERS Safety Report 8914499 (Version 1)
Quarter: 2012Q4

REPORT INFORMATION
  Report Type: 
  Country: GB (occurrence: GB)
  Receive Date: 20121119
  Receipt Date: 20121119
  Transmission Date: 20130627
  Serious: Yes (Disabling)
  Sender: FDA-Public Use
  Company Number: GB-PFIZER INC-2012284993

PATIENT
  Age: 35 Year
  Sex: Male
  Weight: 102 kg

DRUGS (2)
  1. CHAMPIX [Suspect]
     Dosage: UNK
     Route: 048
     Dates: start: 20121022, end: 20121030
  2. ERYTHROMYCIN [Concomitant]
     Dosage: UNK

REACTIONS (5)
  - Agitation [Recovering/Resolving]
  - Aggression [Recovering/Resolving]
  - Depression [Recovering/Resolving]
  - Tearfulness [Recovering/Resolving]
  - Memory impairment [Recovering/Resolving]
